FAERS Safety Report 9448513 (Version 1)
Quarter: 2013Q3

REPORT INFORMATION
  Report Type: Spontaneous
  Country: DE (occurrence: DE)
  Receive Date: 20130808
  Receipt Date: 20130808
  Transmission Date: 20140515
  Serious: Yes (Other)
  Sender: FDA-Public Use
  Company Number: DE-TEVA-423463GER

PATIENT
  Age: 73 Year
  Sex: Male

DRUGS (2)
  1. VALPROIC ACID [Suspect]
     Indication: MAJOR DEPRESSION
     Dosage: UP TO 1200 MG/DAY
     Route: 065
  2. AMITRIPTYLINE [Interacting]
     Indication: MAJOR DEPRESSION
     Dosage: 150 MILLIGRAM DAILY;
     Route: 065

REACTIONS (10)
  - Delirium [Unknown]
  - Drug interaction [Unknown]
  - Muscle rigidity [Unknown]
  - Ataxia [Unknown]
  - Dysarthria [Unknown]
  - Somnolence [Unknown]
  - Hyperhidrosis [Unknown]
  - Dizziness [Unknown]
  - Tremor [Unknown]
  - Constipation [Unknown]
